FAERS Safety Report 7793177-1 (Version None)
Quarter: 2011Q3

REPORT INFORMATION
  Report Type: 
  Country: None (occurrence: None)
  Receive Date: 20110930
  Receipt Date: 20110930
  Transmission Date: 20111222
  Serious: Yes (Life-Threatening, Other)
  Sender: FDA-Public Use
  Company Number: None

PATIENT
  Age: 68 Year
  Sex: Female
  Weight: 56.246 kg

DRUGS (1)
  1. ZOCOR [Suspect]
     Indication: BLOOD CHOLESTEROL INCREASED
     Dosage: 20MG - 40MG 1 X DAY
     Dates: start: 20090219, end: 20110829

REACTIONS (4)
  - DIARRHOEA [None]
  - COLITIS [None]
  - PAIN IN EXTREMITY [None]
  - HAEMATOCHEZIA [None]
